FAERS Safety Report 25800621 (Version 3)
Quarter: 2025Q4

REPORT INFORMATION
  Report Type: Spontaneous
  Country: US (occurrence: US)
  Receive Date: 20250915
  Receipt Date: 20251120
  Transmission Date: 20260117
  Serious: Yes (Other)
  Sender: SANOFI AVENTIS
  Company Number: US-SA-2025SA271491

PATIENT
  Age: 62 Year
  Sex: Female

DRUGS (2)
  1. DUPIXENT [Suspect]
     Active Substance: DUPILUMAB
     Indication: Idiopathic urticaria
     Dosage: 300 MG, QOW
     Route: 058
     Dates: start: 20250822, end: 2025
  2. DUPIXENT [Suspect]
     Active Substance: DUPILUMAB
     Indication: Chronic spontaneous urticaria

REACTIONS (12)
  - T-cell lymphoma stage IV [Unknown]
  - Musculoskeletal discomfort [Not Recovered/Not Resolved]
  - Skin lesion [Unknown]
  - Neck mass [Unknown]
  - Limb mass [Unknown]
  - Breast mass [Unknown]
  - Pruritus [Recovered/Resolved]
  - Back pain [Unknown]
  - Urticaria [Recovered/Resolved]
  - Arthralgia [Unknown]
  - Vitreous floaters [Recovered/Resolved]
  - Off label use [Unknown]

NARRATIVE: CASE EVENT DATE: 20250101
